FAERS Safety Report 6258138-2 (Version None)
Quarter: 2009Q3

REPORT INFORMATION
  Report Type: 
  Country: None (occurrence: None)
  Receive Date: 20090702
  Receipt Date: 20090702
  Transmission Date: 20100115
  Serious: Yes (Hospitalization)
  Sender: FDA-Public Use
  Company Number: None

PATIENT
  Sex: Female
  Weight: 76.5 kg

DRUGS (3)
  1. TAXOL [Suspect]
     Dosage: 324 MG
     Dates: end: 20090615
  2. TOPOTECAN [Suspect]
     Dosage: 4.17 MG
     Dates: end: 20090617
  3. CELEXA [Concomitant]

REACTIONS (10)
  - ANAEMIA [None]
  - ARTHRALGIA [None]
  - CHILLS [None]
  - COUGH [None]
  - FATIGUE [None]
  - HEADACHE [None]
  - MYALGIA [None]
  - NAUSEA [None]
  - PNEUMONIA [None]
  - VOMITING [None]
